FAERS Safety Report 26095681 (Version 3)
Quarter: 2025Q4

REPORT INFORMATION
  Report Type: Spontaneous
  Country: JP (occurrence: JP)
  Receive Date: 20251127
  Receipt Date: 20251230
  Transmission Date: 20260118
  Serious: Yes (Hospitalization, Other)
  Sender: JOHNSON AND JOHNSON
  Company Number: JP-JNJFOC-20251172489

PATIENT
  Age: 79 Year
  Sex: Female
  Weight: 31 kg

DRUGS (69)
  1. TREMFYA [Suspect]
     Active Substance: GUSELKUMAB
     Indication: Colitis ulcerative
     Dosage: THERAPY END DATE 11-SEP-2025
     Route: 041
     Dates: start: 20250911, end: 20250911
  2. TREMFYA [Suspect]
     Active Substance: GUSELKUMAB
     Dosage: THERAPY START DATE 09-OCT-2025 14:00
     Route: 041
     Dates: start: 20251009, end: 20251009
  3. TREMFYA [Suspect]
     Active Substance: GUSELKUMAB
     Dosage: THERAPY END DATE 06-NOV-2025
     Route: 041
     Dates: start: 20251106, end: 20251106
  4. TREMFYA [Suspect]
     Active Substance: GUSELKUMAB
  5. TRANSAMIN [Suspect]
     Active Substance: TRANEXAMIC ACID
     Indication: Product used for unknown indication
     Route: 041
     Dates: start: 20251001, end: 20251016
  6. PREDONINE [Concomitant]
     Active Substance: PREDNISOLONE
     Indication: Colitis ulcerative
     Dosage: AFTER BREAKFAST
     Route: 048
     Dates: start: 20251015, end: 20251015
  7. PREDONINE [Concomitant]
     Active Substance: PREDNISOLONE
     Indication: Polymyalgia rheumatica
     Dosage: AFTER BREAKFAST
     Route: 048
  8. PREDONINE [Concomitant]
     Active Substance: PREDNISOLONE
     Dosage: AFTER BREAKFAST
     Route: 048
  9. POTASSIUM CHLORIDE [Concomitant]
     Active Substance: POTASSIUM CHLORIDE
     Indication: Product used for unknown indication
     Dosage: AFTER BREAKFAST AND DINNER
     Dates: start: 20251027
  10. AMLODIPINE BESYLATE [Concomitant]
     Active Substance: AMLODIPINE BESYLATE
     Indication: Product used for unknown indication
     Dosage: AFTER BREAKFAST
     Route: 048
     Dates: start: 20251015, end: 20251015
  11. ESOMEPRAZOLE MAGNESIUM [Concomitant]
     Active Substance: ESOMEPRAZOLE MAGNESIUM
     Indication: Product used for unknown indication
     Dosage: AFTER BREAKFAST
     Route: 048
     Dates: start: 20251015, end: 20251015
  12. AMINO ACIDS\CARBOHYDRATES\MINERALS\SOYBEAN OIL\VITAMINS [Concomitant]
     Active Substance: AMINO ACIDS\CARBOHYDRATES\MINERALS\SOYBEAN OIL\VITAMINS
     Indication: Product used for unknown indication
     Dosage: DOSE UNKNOWN
     Route: 048
     Dates: start: 20251014, end: 20251014
  13. AMINO ACIDS\CARBOHYDRATES\MINERALS\SOYBEAN OIL\VITAMINS [Concomitant]
     Active Substance: AMINO ACIDS\CARBOHYDRATES\MINERALS\SOYBEAN OIL\VITAMINS
     Dosage: AFTER BREAKFAST
     Route: 048
     Dates: start: 20251015, end: 20251015
  14. AMINO ACIDS\CARBOHYDRATES\MINERALS\SOYBEAN OIL\VITAMINS [Concomitant]
     Active Substance: AMINO ACIDS\CARBOHYDRATES\MINERALS\SOYBEAN OIL\VITAMINS
     Dosage: AFTER LUNCH
     Route: 048
  15. AMINO ACIDS\CARBOHYDRATES\MINERALS\SOYBEAN OIL\VITAMINS [Concomitant]
     Active Substance: AMINO ACIDS\CARBOHYDRATES\MINERALS\SOYBEAN OIL\VITAMINS
     Dosage: AFTER DINNER
     Route: 048
  16. AMINO ACIDS\CARBOHYDRATES\MINERALS\SOYBEAN OIL\VITAMINS [Concomitant]
     Active Substance: AMINO ACIDS\CARBOHYDRATES\MINERALS\SOYBEAN OIL\VITAMINS
     Dosage: DOSE UNKNOWN
     Route: 048
  17. AMINO ACIDS\CARBOHYDRATES\MINERALS\SOYBEAN OIL\VITAMINS [Concomitant]
     Active Substance: AMINO ACIDS\CARBOHYDRATES\MINERALS\SOYBEAN OIL\VITAMINS
     Dosage: AFTER LUNCH
     Route: 048
  18. AMINO ACIDS\CARBOHYDRATES\MINERALS\SOYBEAN OIL\VITAMINS [Concomitant]
     Active Substance: AMINO ACIDS\CARBOHYDRATES\MINERALS\SOYBEAN OIL\VITAMINS
     Dosage: AFTER DINNER
     Route: 048
  19. SULFAMETHOXAZOLE\TRIMETHOPRIM [Concomitant]
     Active Substance: SULFAMETHOXAZOLE\TRIMETHOPRIM
     Indication: Product used for unknown indication
     Dosage: AFTER BREAKFAST, MONDAY, WEDNESDAY, FRIDAY
     Route: 048
     Dates: start: 20251015, end: 20251015
  20. BISOPROLOL [Concomitant]
     Active Substance: BISOPROLOL
     Indication: Product used for unknown indication
     Dosage: BEFORE BEDTIME
     Route: 062
     Dates: start: 20251015, end: 20251015
  21. OMEPRAZOLE SODIUM [Concomitant]
     Active Substance: OMEPRAZOLE SODIUM
     Indication: Product used for unknown indication
     Route: 042
     Dates: start: 20251009, end: 20251014
  22. OMEPRAZOLE SODIUM [Concomitant]
     Active Substance: OMEPRAZOLE SODIUM
     Route: 042
     Dates: start: 20251016, end: 20251020
  23. SODIUM CHLORIDE [Concomitant]
     Active Substance: SODIUM CHLORIDE
     Indication: Product used for unknown indication
     Dosage: THERAPY END DATE 09-OCT-2025
     Route: 042
     Dates: start: 20251009, end: 20251009
  24. SODIUM CHLORIDE [Concomitant]
     Active Substance: SODIUM CHLORIDE
     Dosage: THERAPY END DATE 09-OCT-2025
     Route: 042
     Dates: start: 20251009, end: 20251009
  25. SODIUM CHLORIDE [Concomitant]
     Active Substance: SODIUM CHLORIDE
     Route: 042
     Dates: start: 20251009, end: 20251014
  26. SODIUM CHLORIDE [Concomitant]
     Active Substance: SODIUM CHLORIDE
     Route: 042
     Dates: start: 20251009, end: 20251014
  27. SODIUM CHLORIDE [Concomitant]
     Active Substance: SODIUM CHLORIDE
     Route: 042
     Dates: start: 20251012, end: 20251014
  28. SODIUM CHLORIDE [Concomitant]
     Active Substance: SODIUM CHLORIDE
     Route: 042
     Dates: start: 20251012, end: 20251024
  29. SODIUM CHLORIDE [Concomitant]
     Active Substance: SODIUM CHLORIDE
     Dosage: THERAPY END DATE 16-OCT-2025
     Route: 042
     Dates: start: 20251016, end: 20251016
  30. SODIUM CHLORIDE [Concomitant]
     Active Substance: SODIUM CHLORIDE
     Dosage: THERAPY END DATE 16-OCT-2025
     Route: 042
     Dates: start: 20251016, end: 20251016
  31. SODIUM CHLORIDE [Concomitant]
     Active Substance: SODIUM CHLORIDE
     Route: 042
     Dates: start: 20251016, end: 20251024
  32. SODIUM CHLORIDE [Concomitant]
     Active Substance: SODIUM CHLORIDE
     Route: 042
     Dates: start: 20251016, end: 20251020
  33. AMINO ACIDS\DEXTROSE\ELECTROLYTES NOS\VITAMINS [Concomitant]
     Active Substance: AMINO ACIDS\DEXTROSE\ELECTROLYTES NOS\VITAMINS
     Indication: Product used for unknown indication
     Route: 041
     Dates: start: 20250916, end: 20251013
  34. PREDONINE [Concomitant]
     Active Substance: PREDNISOLONE
     Indication: Product used for unknown indication
     Route: 041
     Dates: start: 20251009, end: 20251014
  35. PREDONINE [Concomitant]
     Active Substance: PREDNISOLONE
     Route: 041
     Dates: start: 20251016, end: 20251024
  36. MICAFUNGIN SODIUM [Concomitant]
     Active Substance: MICAFUNGIN SODIUM
     Indication: Product used for unknown indication
     Dosage: DOSE UNKNOWN
     Route: 041
  37. MICAFUNGIN SODIUM [Concomitant]
     Active Substance: MICAFUNGIN SODIUM
     Route: 041
     Dates: start: 20251012, end: 20251024
  38. SOLACET D [Concomitant]
     Indication: Product used for unknown indication
     Route: 041
     Dates: start: 20251010, end: 20251015
  39. SOLACET D [Concomitant]
     Dosage: THERAPY END DATE 16-OCT-2025
     Route: 041
     Dates: start: 20251016, end: 20251016
  40. CARBAZOCHROME SODIUM SULFONATE [Concomitant]
     Active Substance: CARBAZOCHROME SODIUM SULFONATE
     Indication: Product used for unknown indication
     Route: 041
     Dates: start: 20251010, end: 20251015
  41. CARBAZOCHROME SODIUM SULFONATE [Concomitant]
     Active Substance: CARBAZOCHROME SODIUM SULFONATE
     Dosage: THERAPY END DATE 16-OCT-2025
     Route: 041
     Dates: start: 20251016, end: 20251016
  42. K.C.L. [Concomitant]
     Indication: Product used for unknown indication
     Dosage: THERAPY END DATE  --2025
     Route: 041
     Dates: start: 20250825, end: 2025
  43. K.C.L. [Concomitant]
     Dosage: THERAPY END DATE 09-OCT-2025
     Route: 041
     Dates: start: 20251009, end: 20251009
  44. K.C.L. [Concomitant]
     Route: 041
     Dates: start: 20251010, end: 20251015
  45. K.C.L. [Concomitant]
     Dosage: THERAPY END DATE 16-OCT-2025
     Route: 041
     Dates: start: 20251016, end: 20251016
  46. K.C.L. [Concomitant]
     Route: 041
     Dates: start: 20251027
  47. VANCOMYCIN HYDROCHLORIDE [Concomitant]
     Active Substance: VANCOMYCIN HYDROCHLORIDE
     Indication: Product used for unknown indication
     Route: 041
     Dates: start: 20251012, end: 20251014
  48. CALCIUM CHLORIDE\POTASSIUM CHLORIDE\SODIUM ACETATE\SODIUM CHLORIDE [Concomitant]
     Active Substance: CALCIUM CHLORIDE\POTASSIUM CHLORIDE\SODIUM ACETATE\SODIUM CHLORIDE
     Indication: Product used for unknown indication
     Dosage: THERAPY END DATE 16-OCT-2025
     Route: 041
     Dates: start: 20251016, end: 20251016
  49. CALCIUM CHLORIDE\POTASSIUM CHLORIDE\SODIUM ACETATE\SODIUM CHLORIDE [Concomitant]
     Active Substance: CALCIUM CHLORIDE\POTASSIUM CHLORIDE\SODIUM ACETATE\SODIUM CHLORIDE
     Dosage: THERAPY END DATE 16-OCT-2025
     Route: 041
     Dates: start: 20251016, end: 20251016
  50. EPINEPHRINE [Concomitant]
     Active Substance: EPINEPHRINE
     Indication: Product used for unknown indication
     Dosage: THERAPY END DATE 16-OCT-2025
     Route: 042
     Dates: start: 20251016, end: 20251016
  51. MAGNESIUM SULFATE [Concomitant]
     Active Substance: MAGNESIUM SULFATE
     Indication: Product used for unknown indication
     Dosage: 20MEQ/20ML
     Route: 041
     Dates: start: 20251016, end: 20251016
  52. CEFTRIAXONE SODIUM [Concomitant]
     Active Substance: CEFTRIAXONE SODIUM
     Indication: Product used for unknown indication
     Dosage: DOSE UNKNOWN
     Dates: start: 20250826, end: 20250915
  53. PREDNISOLONE [Concomitant]
     Active Substance: PREDNISOLONE
     Indication: Product used for unknown indication
     Dosage: DOSE UNKNOWN
  54. PREDNISOLONE [Concomitant]
     Active Substance: PREDNISOLONE
     Dosage: DOSE DECREASED
     Dates: start: 20250825, end: 20250827
  55. PREDNISOLONE [Concomitant]
     Active Substance: PREDNISOLONE
     Dates: start: 20250828, end: 20250831
  56. PREDNISOLONE [Concomitant]
     Active Substance: PREDNISOLONE
     Dates: start: 20250901, end: 20250915
  57. PREDNISOLONE [Concomitant]
     Active Substance: PREDNISOLONE
     Dates: start: 20250916, end: 20251008
  58. PREDNISOLONE [Concomitant]
     Active Substance: PREDNISOLONE
     Dates: start: 20251009, end: 20251013
  59. PREDNISOLONE [Concomitant]
     Active Substance: PREDNISOLONE
     Indication: Product used for unknown indication
     Dosage: DOSE UNKNOWN
     Route: 048
     Dates: start: 20251014, end: 20251024
  60. PREDNISOLONE [Concomitant]
     Active Substance: PREDNISOLONE
     Dosage: DOSE DECREASED
     Route: 048
     Dates: start: 20251025, end: 20251111
  61. PREDNISOLONE [Concomitant]
     Active Substance: PREDNISOLONE
     Route: 048
     Dates: start: 20251112, end: 20251125
  62. PREDNISOLONE [Concomitant]
     Active Substance: PREDNISOLONE
     Route: 048
     Dates: start: 20251126
  63. MEROPENEM [Concomitant]
     Active Substance: MEROPENEM
     Indication: Product used for unknown indication
     Dosage: DOSE UNKNOWN
     Dates: start: 20250819, end: 20250825
  64. MEROPENEM [Concomitant]
     Active Substance: MEROPENEM
     Dosage: DOSE UNKNOWN
  65. VANCOMYCIN HYDROCHLORIDE [Concomitant]
     Active Substance: VANCOMYCIN HYDROCHLORIDE
     Indication: Product used for unknown indication
     Dosage: DOSE UNKNOWN
     Dates: start: 20250819, end: 20250915
  66. VANCOMYCIN HYDROCHLORIDE [Concomitant]
     Active Substance: VANCOMYCIN HYDROCHLORIDE
     Dosage: DOSE UNKNOWN
  67. SOLU-MEDROL [Concomitant]
     Active Substance: METHYLPREDNISOLONE SODIUM SUCCINATE
     Indication: Product used for unknown indication
     Dosage: DOSE UNKNOWN
  68. SOLU-MEDROL [Concomitant]
     Active Substance: METHYLPREDNISOLONE SODIUM SUCCINATE
     Dosage: DOSE DECREASED
     Dates: start: 20250819, end: 20250821
  69. SOLU-MEDROL [Concomitant]
     Active Substance: METHYLPREDNISOLONE SODIUM SUCCINATE
     Dosage: DOSE DECREASED
     Dates: start: 20250822

REACTIONS (3)
  - Cerebral infarction [Recovered/Resolved with Sequelae]
  - Melaena [Recovering/Resolving]
  - Pyrexia [Recovering/Resolving]

NARRATIVE: CASE EVENT DATE: 20250918
